FAERS Safety Report 8264592-7 (Version None)
Quarter: 2012Q2

REPORT INFORMATION
  Report Type: 
  Country: None (occurrence: None)
  Receive Date: 20120406
  Receipt Date: 20120328
  Transmission Date: 20120825
  Serious: Yes (Other)
  Sender: FDA-Public Use
  Company Number: CA-UCBSA-052590

PATIENT
  Age: 72 Year
  Sex: Female
  Weight: 70 kg

DRUGS (3)
  1. INH+B6 [Concomitant]
     Dosage: 300/25 MG
     Route: 048
     Dates: start: 20111201
  2. CIMZIA [Suspect]
     Indication: RHEUMATOID ARTHRITIS
     Dosage: 400 MG, NO OF DOSES RECEIVED: 3
     Route: 058
     Dates: start: 20120216, end: 20120315
  3. METHOTREXATE [Concomitant]
     Indication: RHEUMATOID ARTHRITIS
     Route: 058
     Dates: start: 20110301

REACTIONS (2)
  - MIDDLE INSOMNIA [None]
  - HERPES ZOSTER [None]
